FAERS Safety Report 7310662-7 (Version None)
Quarter: 2011Q1

REPORT INFORMATION
  Report Type: 
  Country: None (occurrence: None)
  Receive Date: 20110224
  Receipt Date: 20110128
  Transmission Date: 20110831
  Serious: No
  Sender: FDA-Public Use
  Company Number: US-B.I. PHARMACEUTICALS,INC./RIDGEFIELD-2011-BP-02891BP

PATIENT
  Age: 80 Year
  Sex: Female

DRUGS (2)
  1. NORCO [Concomitant]
     Indication: BACK PAIN
     Route: 048
     Dates: start: 20101201
  2. PRADAXA [Suspect]
     Indication: ATRIAL FIBRILLATION
     Dosage: 300 MG
     Route: 048
     Dates: start: 20110125

REACTIONS (2)
  - NAUSEA [None]
  - FLUSHING [None]
